FAERS Safety Report 5136002-X (Version None)
Quarter: 2006Q4

REPORT INFORMATION
  Report Type: 
  Country: None (occurrence: None)
  Receive Date: 20061020
  Receipt Date: 20061009
  Transmission Date: 20070319
  Serious: Yes (Other)
  Sender: FDA-Public Use
  Company Number: 30350

PATIENT
  Sex: Male

DRUGS (1)
  1. ALDARA [Suspect]
     Indication: ACTINIC KERATOSIS
     Dosage: (1 UNSPEC.) TOPICAL
     Route: 061
     Dates: start: 20060801, end: 20060801

REACTIONS (3)
  - APPLICATION SITE IRRITATION [None]
  - ERYTHEMA MULTIFORME [None]
  - MUCOSAL INFLAMMATION [None]
